FAERS Safety Report 9911474 (Version 1)
Quarter: 2014Q1

REPORT INFORMATION
  Report Type: Spontaneous
  Country: US (occurrence: US)
  Receive Date: 20140219
  Receipt Date: 20140219
  Transmission Date: 20141002
  Serious: Yes (Hospitalization)
  Sender: FDA-Public Use
  Company Number: PHHY2014US016269

PATIENT
  Age: 57 Year
  Sex: Male

DRUGS (2)
  1. 5-FLUOROURACIL [Suspect]
     Indication: LARYNGEAL SQUAMOUS CELL CARCINOMA
     Dosage: 890 MG, Q12H
     Route: 042
  2. CIS-PLATINUM [Concomitant]
     Indication: LARYNGEAL SQUAMOUS CELL CARCINOMA
     Dosage: 178 MG, UNK

REACTIONS (5)
  - Systemic lupus erythematosus [Unknown]
  - Exfoliative rash [Unknown]
  - Rash erythematous [Unknown]
  - Rash [Unknown]
  - Seborrhoeic dermatitis [Unknown]
